FAERS Safety Report 6348192-1 (Version None)
Quarter: 2009Q3

REPORT INFORMATION
  Report Type: 
  Country: None (occurrence: None)
  Receive Date: 20090908
  Receipt Date: 20090824
  Transmission Date: 20100115
  Serious: Yes (Death)
  Sender: FDA-Public Use
  Company Number: CLOF-1000622

PATIENT
  Age: 61 Year
  Sex: Female

DRUGS (12)
  1. EVOLTRA (CLOFARABINE) SOLUTION FOR INFUSION [Suspect]
     Indication: ACUTE MYELOID LEUKAEMIA
     Dosage: 38 MG, QDX5, INTRAVENOUS
     Route: 042
     Dates: start: 20090627, end: 20090701
  2. DAUNORUBICIN HCL [Suspect]
     Indication: ACUTE MYELOID LEUKAEMIA
     Dosage: INTRAVENOUS
     Route: 042
     Dates: start: 20090627, end: 20090701
  3. ONDANSETRON [Concomitant]
  4. OMEPRAZOLE [Concomitant]
  5. DOMPERIDONE (DOMPERIDONE) [Concomitant]
  6. NYSTATIN [Concomitant]
  7. ETHINYLESTRADIOL (ETHINYLESTRADIOL, NORGESTREL) [Concomitant]
  8. DOCUSATE SODIUM (DOCUSATE SODIUM) [Concomitant]
  9. BISACODYL (BISACODYL) [Concomitant]
  10. LEVOMEPROMAZINE (LEVOMEPROMAZINE MALEATE) [Concomitant]
  11. VITAMIN K (VITAMIN K NOS) [Concomitant]
  12. TRANEXAMIC ACID (TRANEXAMIC ACID) [Concomitant]

REACTIONS (17)
  - ALANINE AMINOTRANSFERASE INCREASED [None]
  - ASPARTATE AMINOTRANSFERASE INCREASED [None]
  - ATRIAL FIBRILLATION [None]
  - BLOOD ALBUMIN DECREASED [None]
  - BLOOD GLUCOSE INCREASED [None]
  - BLOOD MAGNESIUM DECREASED [None]
  - BLOOD PRESSURE SYSTOLIC INCREASED [None]
  - CARDIO-RESPIRATORY ARREST [None]
  - DIALYSIS [None]
  - FLUID OVERLOAD [None]
  - GAMMA-GLUTAMYLTRANSFERASE INCREASED [None]
  - HEPATIC FUNCTION ABNORMAL [None]
  - HYPOTENSION [None]
  - MULTI-ORGAN FAILURE [None]
  - PARAESTHESIA [None]
  - RENAL FAILURE [None]
  - SEPSIS [None]
